FAERS Safety Report 8328745-1 (Version None)
Quarter: 2012Q2

REPORT INFORMATION
  Report Type: 
  Country: None (occurrence: None)
  Receive Date: 20120502
  Receipt Date: 20120424
  Transmission Date: 20120825
  Serious: Yes (Death, Hospitalization)
  Sender: FDA-Public Use
  Company Number: JP-AMGEN-JPNCT2012011133

PATIENT
  Age: 69 Year
  Sex: Male
  Weight: 64 kg

DRUGS (11)
  1. OXALIPLATIN [Concomitant]
     Dosage: 100 MG, Q2WK
     Route: 042
     Dates: start: 20110720, end: 20120118
  2. DEXAMETHASONE SODIUM PHOSPHATE [Concomitant]
     Route: 041
     Dates: start: 20110720, end: 20120118
  3. GRANISETRON [Concomitant]
     Route: 041
     Dates: start: 20110720, end: 20120118
  4. OXYCONTIN [Concomitant]
     Route: 048
  5. OXALIPLATIN [Concomitant]
     Indication: COLORECTAL CANCER
     Dosage: UNK UNK, Q2WK
     Route: 041
     Dates: start: 20110615
  6. LEUCOVORIN CALCIUM [Concomitant]
     Dosage: 225 MG, Q2WK
     Dates: start: 20110720, end: 20120118
  7. PANITUMUMAB [Suspect]
     Indication: COLORECTAL CANCER
     Dosage: UNK, Q2WK
     Route: 041
     Dates: start: 20110615
  8. FLUOROURACIL [Concomitant]
     Indication: COLORECTAL CANCER
     Dosage: UNK UNK, Q2WK
     Route: 041
     Dates: start: 20110615
  9. FLUOROURACIL [Concomitant]
     Dosage: 3250 MG, Q2WK
     Route: 041
     Dates: start: 20110720, end: 20120120
  10. PANITUMUMAB [Suspect]
     Dosage: 400 MG, Q2WK
     Route: 041
     Dates: start: 20110720, end: 20120118
  11. LEUCOVORIN CALCIUM [Concomitant]
     Indication: COLORECTAL CANCER
     Dosage: UNK
     Route: 041
     Dates: start: 20110615

REACTIONS (2)
  - INTERSTITIAL LUNG DISEASE [None]
  - SKIN DISORDER [None]
